FAERS Safety Report 12785578 (Version 2)
Quarter: 2016Q4

REPORT INFORMATION
  Report Type: Spontaneous
  Country: JP (occurrence: JP)
  Receive Date: 20160927
  Receipt Date: 20161214
  Transmission Date: 20170207
  Serious: Yes (Other)
  Sender: FDA-Public Use
  Company Number: JP-BRISTOL-MYERS SQUIBB COMPANY-BMS-2015-042468

PATIENT
  Age: 65 Year
  Sex: Male

DRUGS (14)
  1. NORMAL SALINE [Concomitant]
     Active Substance: SODIUM CHLORIDE
     Indication: PRODUCT USED FOR UNKNOWN INDICATION
     Dosage: UNK UNK, UNKNOWN
     Route: 065
     Dates: start: 20150119, end: 20150305
  2. 5-FU                               /00098801/ [Concomitant]
     Active Substance: FLUOROURACIL
     Indication: SQUAMOUS CELL CARCINOMA OF HEAD AND NECK
     Dosage: UNK UNK, UNKNOWN
     Route: 042
     Dates: end: 20150309
  3. DECADRON [Concomitant]
     Active Substance: DEXAMETHASONE
     Indication: PRODUCT USED FOR UNKNOWN INDICATION
     Dosage: 6.6 MG, WEEKLY (1/W)
     Route: 065
     Dates: start: 20150120, end: 20150305
  4. RESTAMIN                           /00000401/ [Concomitant]
     Active Substance: DIPHENHYDRAMINE
     Indication: PRODUCT USED FOR UNKNOWN INDICATION
     Dosage: 50 MG, WEEKLY (1/W)
     Route: 048
     Dates: start: 20150120, end: 20150305
  5. MANNITOL. [Concomitant]
     Active Substance: MANNITOL
     Indication: PRODUCT USED FOR UNKNOWN INDICATION
     Dosage: 300 ML, MONTHLY (1/M)
     Route: 065
     Dates: start: 20150120, end: 20150219
  6. 5-FU                               /00098801/ [Concomitant]
     Active Substance: FLUOROURACIL
     Dosage: 1000 MG, MONTHLY (1/M)
     Dates: start: 20150219, end: 20150222
  7. ERBITUX [Suspect]
     Active Substance: CETUXIMAB
     Indication: OROPHARYNGEAL CANCER
     Dosage: 600 MG, UNKNOWN
     Route: 042
     Dates: start: 20150120, end: 20150305
  8. MINOMYCIN [Concomitant]
     Active Substance: MINOCYCLINE HYDROCHLORIDE
     Indication: PRODUCT USED FOR UNKNOWN INDICATION
     Dosage: 100 MG, QD
     Route: 048
     Dates: start: 20150120, end: 20150401
  9. CDDP [Concomitant]
     Active Substance: CISPLATIN
     Indication: SQUAMOUS CELL CARCINOMA OF HEAD AND NECK
     Dosage: UNK UNK, UNKNOWN
     Route: 042
     Dates: end: 20150309
  10. CDDP [Concomitant]
     Active Substance: CISPLATIN
     Indication: OROPHARYNGEAL CANCER
     Dosage: 120 MG, MONTHLY (1/M)
     Dates: start: 20150120, end: 20150120
  11. CDDP [Concomitant]
     Active Substance: CISPLATIN
     Dosage: 110 MG, MONTHLY (1/M)
     Dates: start: 20150219, end: 20150219
  12. 5-FU                               /00098801/ [Concomitant]
     Active Substance: FLUOROURACIL
     Indication: OROPHARYNGEAL CANCER
     Dosage: 1000 MG, MONTHLY (1/M)
     Dates: start: 20150120, end: 20150123
  13. ALOXI [Concomitant]
     Active Substance: PALONOSETRON HYDROCHLORIDE
     Indication: PRODUCT USED FOR UNKNOWN INDICATION
     Dosage: .75 MG, MONTHLY (1/M)
     Route: 065
     Dates: start: 20150120, end: 20150219
  14. EMEND [Concomitant]
     Active Substance: APREPITANT
     Indication: PRODUCT USED FOR UNKNOWN INDICATION
     Dosage: 1TIME: 125MG, 80MG, 3DAYS
     Route: 048
     Dates: start: 20150120, end: 20150221

REACTIONS (12)
  - Platelet count decreased [Recovered/Resolved]
  - Alanine aminotransferase increased [Recovered/Resolved]
  - Dry skin [Recovered/Resolved]
  - Aspartate aminotransferase increased [Recovered/Resolved]
  - Blood alkaline phosphatase increased [Recovered/Resolved]
  - Pneumonia [Recovered/Resolved]
  - Dermatitis acneiform [Recovered/Resolved]
  - Hypokalaemia [Recovered/Resolved]
  - Anaemia [Recovering/Resolving]
  - White blood cell count decreased [Recovered/Resolved]
  - Blood urea increased [Recovered/Resolved]
  - Hypocalcaemia [Recovered/Resolved]

NARRATIVE: CASE EVENT DATE: 20150202
